FAERS Safety Report 11209004 (Version 1)
Quarter: 2015Q2

REPORT INFORMATION
  Report Type: Report from Study
  Country: JP (occurrence: JP)
  Receive Date: 20150622
  Receipt Date: 20150622
  Transmission Date: 20150821
  Serious: Yes (Disabling)
  Sender: FDA-Public Use
  Company Number: JP-BRISTOL-MYERS SQUIBB COMPANY-BMS-2015-040358

PATIENT
  Age: 4 Decade
  Sex: Male

DRUGS (12)
  1. PROMAC                             /00024401/ [Concomitant]
     Active Substance: NITROFURANTOIN
     Indication: GASTRITIS
     Dosage: 75 MG, BID
     Route: 048
     Dates: end: 20150331
  2. MIYA-BM [Concomitant]
     Active Substance: CLOSTRIDIUM BUTYRICUM SPORES STRAIN M-55
     Indication: GASTRITIS
     Dosage: 1 G, TID
     Route: 048
     Dates: end: 20141027
  3. PREZISTANAIVE [Concomitant]
     Active Substance: DARUNAVIR
     Indication: HIV INFECTION
     Route: 065
  4. PARIET [Concomitant]
     Active Substance: RABEPRAZOLE SODIUM
     Indication: GASTRITIS
     Dosage: 10 MG, QD
     Route: 048
  5. URSO [Concomitant]
     Active Substance: URSODIOL
     Indication: HEPATITIS
     Dosage: 300 MG, BID
     Route: 048
     Dates: end: 20141008
  6. NORVIR [Concomitant]
     Active Substance: RITONAVIR
     Indication: HIV INFECTION
     Route: 065
  7. EFAVIRENZ [Suspect]
     Active Substance: EFAVIRENZ
     Indication: HIV INFECTION
     Dosage: 600 MG, QD
     Route: 048
     Dates: start: 20010809, end: 20080331
  8. EFAVIRENZ [Suspect]
     Active Substance: EFAVIRENZ
     Dosage: 400 MG, QD
     Route: 048
     Dates: start: 20080401, end: 20110707
  9. CROSS EIGHT M [Concomitant]
     Active Substance: ANTIHEMOPHILIC FACTOR HUMAN
     Indication: FACTOR VIII DEFICIENCY
     Dosage: 1000 MILLION UNIT, BID
     Route: 051
  10. PORTOLAC [Concomitant]
     Active Substance: LACTITOL
     Indication: HYPERAMMONAEMIA
     Dosage: 6 G, QD
     Route: 048
     Dates: end: 20141027
  11. TRUVADA [Concomitant]
     Active Substance: EMTRICITABINE\TENOFOVIR DISOPROXIL FUMARATE
     Indication: HIV INFECTION
     Dosage: 1 DF, QD
     Route: 048
     Dates: start: 20071105
  12. INDERAL [Concomitant]
     Active Substance: PROPRANOLOL HYDROCHLORIDE
     Indication: PORTAL HYPERTENSION
     Dosage: 20 MG, BID
     Route: 065
     Dates: end: 20141027

REACTIONS (1)
  - Platelet count decreased [Not Recovered/Not Resolved]

NARRATIVE: CASE EVENT DATE: 20090424
